FAERS Safety Report 19173072 (Version 8)
Quarter: 2022Q1

REPORT INFORMATION
  Report Type: Report from Study
  Country: US (occurrence: US)
  Receive Date: 20210423
  Receipt Date: 20220330
  Transmission Date: 20220423
  Serious: No
  Sender: FDA-Public Use
  Company Number: NVSC2021US090214

PATIENT
  Age: 71 Year
  Sex: Female

DRUGS (4)
  1. ENTRESTO [Suspect]
     Active Substance: SACUBITRIL\VALSARTAN
     Indication: Cardiac failure
     Dosage: 1 DF (24/26 MG)
     Route: 048
     Dates: start: 20210319
  2. HYDROCODONE [Suspect]
     Active Substance: HYDROCODONE
     Indication: Hip arthroplasty
     Dosage: UNK
     Route: 065
     Dates: start: 20210503
  3. CELEBREX [Concomitant]
     Active Substance: CELECOXIB
     Indication: Product used for unknown indication
     Dosage: UNK
     Route: 065
  4. ASPIRIN [Concomitant]
     Active Substance: ASPIRIN
     Indication: Product used for unknown indication
     Dosage: UNK
     Route: 065

REACTIONS (11)
  - Constipation [Recovered/Resolved]
  - Abdominal discomfort [Unknown]
  - Musculoskeletal stiffness [Recovered/Resolved]
  - Fluid retention [Unknown]
  - Arthralgia [Recovering/Resolving]
  - Procedural pain [Not Recovered/Not Resolved]
  - Joint swelling [Unknown]
  - Nausea [Not Recovered/Not Resolved]
  - Pruritus [Not Recovered/Not Resolved]
  - Dizziness [Not Recovered/Not Resolved]
  - Inappropriate schedule of product administration [Unknown]

NARRATIVE: CASE EVENT DATE: 20210401
